FAERS Safety Report 12540386 (Version 1)
Quarter: 2016Q3

REPORT INFORMATION
  Report Type: Spontaneous
  Country: US (occurrence: US)
  Receive Date: 20160708
  Receipt Date: 20160708
  Transmission Date: 20161109
  Serious: No
  Sender: FDA-Public Use
  Company Number: US-PFIZER INC-2016301155

PATIENT
  Age: 73 Year
  Sex: Female

DRUGS (1)
  1. ADVIL [Suspect]
     Active Substance: IBUPROFEN
     Indication: HEADACHE
     Dosage: 2 DF, SINGLE
     Route: 048
     Dates: start: 20160612

REACTIONS (3)
  - Drug ineffective [Unknown]
  - Product colour issue [Unknown]
  - Product size issue [Unknown]

NARRATIVE: CASE EVENT DATE: 20160612
